FAERS Safety Report 10652828 (Version 1)
Quarter: 2014Q4

REPORT INFORMATION
  Report Type: Spontaneous
  Country: IT (occurrence: IT)
  Receive Date: 20141215
  Receipt Date: 20141215
  Transmission Date: 20150529
  Serious: Yes (Hospitalization)
  Sender: FDA-Public Use
  Company Number: IT-ELI_LILLY_AND_COMPANY-IT201412001420

PATIENT
  Age: 24 Year
  Sex: Male

DRUGS (8)
  1. OLANZAPINE. [Suspect]
     Active Substance: OLANZAPINE
     Indication: INTENTIONAL SELF-INJURY
     Dosage: UNK
     Route: 065
     Dates: start: 20140730, end: 20140730
  2. TOLEP [Suspect]
     Active Substance: OXCARBAZEPINE
     Indication: INTENTIONAL SELF-INJURY
     Dosage: UNK
     Route: 065
     Dates: start: 20140730, end: 20140730
  3. TOLEP [Suspect]
     Active Substance: OXCARBAZEPINE
     Indication: PERSONALITY DISORDER
  4. PLAUNAC [Suspect]
     Active Substance: OLMESARTAN MEDOXOMIL
     Indication: INTENTIONAL SELF-INJURY
     Dosage: UNK UNK, UNKNOWN
     Route: 065
  5. CLONAZEPAM. [Concomitant]
     Active Substance: CLONAZEPAM
     Dosage: UNK, UNKNOWN
     Route: 065
  6. PLAUNAC [Suspect]
     Active Substance: OLMESARTAN MEDOXOMIL
     Indication: PERSONALITY DISORDER
  7. OXCARBAZEPINE. [Concomitant]
     Active Substance: OXCARBAZEPINE
     Indication: PERSONALITY DISORDER
     Dosage: UNK, UNKNOWN
     Route: 065
  8. OLANZAPINE. [Suspect]
     Active Substance: OLANZAPINE
     Indication: PERSONALITY DISORDER

REACTIONS (5)
  - Coma [Unknown]
  - Intentional self-injury [Unknown]
  - Intentional overdose [Unknown]
  - Miosis [Unknown]
  - Off label use [Unknown]

NARRATIVE: CASE EVENT DATE: 20140730
